FAERS Safety Report 17726592 (Version 1)
Quarter: 2020Q2

REPORT INFORMATION
  Report Type: Spontaneous
  Country: US (occurrence: US)
  Receive Date: 20200430
  Receipt Date: 20200430
  Transmission Date: 20200714
  Serious: Yes (Other)
  Sender: FDA-Public Use
  Company Number: US-DRREDDYS-USA/USA/20/0122450

PATIENT
  Age: 48 Year
  Sex: Female

DRUGS (4)
  1. ETOPOSIDE. [Suspect]
     Active Substance: ETOPOSIDE
     Indication: MULTIPLE SCLEROSIS
     Route: 065
     Dates: start: 201811
  2. CYTARABINE. [Suspect]
     Active Substance: CYTARABINE
     Indication: MULTIPLE SCLEROSIS
     Route: 065
     Dates: start: 201811
  3. MELPHALAN HYDROCHLORIDE FOR INJECTION [Suspect]
     Active Substance: MELPHALAN HYDROCHLORIDE
     Indication: MULTIPLE SCLEROSIS
     Route: 065
     Dates: start: 201811
  4. CARMUSTINE. [Suspect]
     Active Substance: CARMUSTINE
     Indication: MULTIPLE SCLEROSIS
     Route: 065
     Dates: start: 201811

REACTIONS (8)
  - Tachycardia [Unknown]
  - Cystitis haemorrhagic [Unknown]
  - Respiratory syncytial virus infection [Unknown]
  - BK virus infection [Unknown]
  - Anaemia [Unknown]
  - Adenovirus infection [Recovered/Resolved]
  - Thrombocytopenia [Unknown]
  - Lymphopenia [Unknown]
